FAERS Safety Report 9007159 (Version 1)
Quarter: 2013Q1

REPORT INFORMATION
  Report Type: Spontaneous
  Country: US (occurrence: US)
  Receive Date: 20130110
  Receipt Date: 20130110
  Transmission Date: 20140127
  Serious: No
  Sender: FDA-Public Use
  Company Number: US-PFIZER INC-2013011138

PATIENT
  Sex: Female

DRUGS (1)
  1. GABAPENTIN [Suspect]
     Indication: PARAESTHESIA
     Dosage: UNK

REACTIONS (6)
  - Drug ineffective [Unknown]
  - Musculoskeletal stiffness [Unknown]
  - Bone pain [Unknown]
  - Hypoaesthesia [Unknown]
  - Pain [Unknown]
  - Fibromyalgia [Unknown]
